FAERS Safety Report 8070760-X (Version None)
Quarter: 2012Q1

REPORT INFORMATION
  Report Type: 
  Country: None (occurrence: None)
  Receive Date: 20120125
  Receipt Date: 20120113
  Transmission Date: 20120608
  Serious: Yes (Other)
  Sender: FDA-Public Use
  Company Number: GR-ELI_LILLY_AND_COMPANY-GR201201004057

PATIENT
  Age: 78 Year
  Sex: Female

DRUGS (1)
  1. ZYPREXA [Suspect]
     Indication: PSYCHOTIC DISORDER
     Dosage: 5 MG, TID
     Route: 048
     Dates: start: 20111001, end: 20111221

REACTIONS (1)
  - ANAEMIA [None]
